FAERS Safety Report 7725504-5 (Version None)
Quarter: 2011Q3

REPORT INFORMATION
  Report Type: 
  Country: None (occurrence: None)
  Receive Date: 20110902
  Receipt Date: 20110607
  Transmission Date: 20111222
  Serious: No
  Sender: FDA-Public Use
  Company Number: US-BRISTOL-MYERS SQUIBB COMPANY-15809312

PATIENT
  Age: 53 Year
  Sex: Female

DRUGS (1)
  1. KOMBIGLYZE XR [Suspect]
     Dosage: 1DF=2.5/1000 MG WHICH WAS THEN TITRATED TO 5/1000 MG

REACTIONS (4)
  - MUSCLE SPASMS [None]
  - MOOD SWINGS [None]
  - ABDOMINAL PAIN [None]
  - NAUSEA [None]
